FAERS Safety Report 19758236 (Version 2)
Quarter: 2021Q3

REPORT INFORMATION
  Report Type: Spontaneous
  Country: US (occurrence: US)
  Receive Date: 20210828
  Receipt Date: 20210929
  Transmission Date: 20211014
  Serious: No
  Sender: FDA-Public Use
  Company Number: US-ASTRAZENECA-2021A671414

PATIENT
  Sex: Female
  Weight: 102.1 kg

DRUGS (2)
  1. BYDUREON [Suspect]
     Active Substance: EXENATIDE
     Route: 058
  2. BYDUREON BCISE [Suspect]
     Active Substance: EXENATIDE
     Route: 058
     Dates: start: 202101

REACTIONS (10)
  - Weight decreased [Unknown]
  - Off label use [Unknown]
  - Injection site mass [Recovering/Resolving]
  - Injection site pain [Unknown]
  - Product use issue [Unknown]
  - Device leakage [Unknown]
  - Product dose omission issue [Unknown]
  - Glycosylated haemoglobin abnormal [Unknown]
  - Incorrect dose administered by device [Unknown]
  - Needle issue [Unknown]
